FAERS Safety Report 6262087-3 (Version None)
Quarter: 2009Q3

REPORT INFORMATION
  Report Type: 
  Country: None (occurrence: None)
  Receive Date: 20090707
  Receipt Date: 20090707
  Transmission Date: 20100115
  Serious: No
  Sender: FDA-Public Use
  Company Number: None

PATIENT
  Age: 50 Year
  Sex: Female
  Weight: 136.0791 kg

DRUGS (1)
  1. BYETTA [Suspect]
     Indication: DIABETES MELLITUS
     Dosage: 10MCG 2XDAY
     Dates: start: 20090628, end: 20090703

REACTIONS (2)
  - OEDEMA PERIPHERAL [None]
  - PRODUCT QUALITY ISSUE [None]
